FAERS Safety Report 7665388-7 (Version None)
Quarter: 2011Q3

REPORT INFORMATION
  Report Type: 
  Country: None (occurrence: None)
  Receive Date: 20110806
  Receipt Date: 20110614
  Transmission Date: 20111222
  Serious: No
  Sender: FDA-Public Use
  Company Number: US-ABBOTT-11P-163-0732703-00

PATIENT
  Sex: Male
  Weight: 78.542 kg

DRUGS (4)
  1. NIASPAN [Suspect]
     Indication: MYOCARDIAL INFARCTION
     Route: 048
     Dates: start: 20110501
  2. PLAVIX [Concomitant]
     Indication: MYOCARDIAL INFARCTION
  3. NIASPAN [Suspect]
     Indication: MYOCARDIAL INFARCTION
     Route: 048
     Dates: start: 20110401, end: 20110430
  4. SIMVASTATIN [Concomitant]
     Indication: BLOOD CHOLESTEROL INCREASED

REACTIONS (3)
  - SKIN EXFOLIATION [None]
  - FLUSHING [None]
  - PRURITUS [None]
